FAERS Safety Report 5268154-5 (Version None)
Quarter: 2007Q1

REPORT INFORMATION
  Report Type: 
  Country: None (occurrence: None)
  Receive Date: 20070316
  Receipt Date: 20070316
  Transmission Date: 20070707
  Serious: Yes (Disabling, Other)
  Sender: FDA-Public Use
  Company Number: None

PATIENT
  Age: 14 Year
  Sex: Female
  Weight: 64 kg

DRUGS (6)
  1. GABAPENTIN [Suspect]
     Indication: PAIN
     Dosage: 600MG 3X DAILY PO
     Route: 048
     Dates: start: 20060905, end: 20061115
  2. MIRTAZON [Concomitant]
  3. ALLEGRON [Concomitant]
  4. EFFEXOR [Concomitant]
  5. PANAFCORT [Concomitant]
  6. ALLEGRON [Concomitant]

REACTIONS (9)
  - BLISTER [None]
  - BURNING SENSATION [None]
  - PAIN [None]
  - PRURITUS [None]
  - RASH [None]
  - SCAB [None]
  - SCAR [None]
  - SKIN DISCOLOURATION [None]
  - URTICARIA [None]
